FAERS Safety Report 11774326 (Version 1)
Quarter: 2015Q4

REPORT INFORMATION
  Report Type: Spontaneous
  Country: US (occurrence: US)
  Receive Date: 20151124
  Receipt Date: 20151124
  Transmission Date: 20160304
  Serious: No
  Sender: FDA-Public Use
  Company Number: US-BAYER-2015-469322

PATIENT
  Sex: Female
  Weight: 58.5 kg

DRUGS (3)
  1. BAYER LOW DOSE [Concomitant]
     Active Substance: ASPIRIN
     Indication: ISCHAEMIC HEART DISEASE PROPHYLAXIS
  2. CALCIUM [Concomitant]
     Active Substance: CALCIUM
  3. ALEVE [Suspect]
     Active Substance: NAPROXEN SODIUM
     Indication: ARTHRITIS
     Dosage: 1 DF, PRN
     Route: 048
     Dates: start: 201510

REACTIONS (2)
  - Product use issue [None]
  - Abdominal discomfort [Recovered/Resolved]
